FAERS Safety Report 21808139 (Version 3)
Quarter: 2023Q1

REPORT INFORMATION
  Report Type: Spontaneous
  Country: US (occurrence: US)
  Receive Date: 20230103
  Receipt Date: 20230315
  Transmission Date: 20230417
  Serious: No
  Sender: FDA-Public Use
  Company Number: US-ALXN-A202216318

PATIENT
  Sex: Female

DRUGS (21)
  1. SOLIRIS [Suspect]
     Active Substance: ECULIZUMAB
     Indication: Myasthenia gravis
     Dosage: UNK, Q2W
     Route: 065
     Dates: start: 202207
  2. MYFORTIC [Concomitant]
     Active Substance: MYCOPHENOLATE SODIUM
     Indication: Product used for unknown indication
     Dosage: 2 DF, BID
     Route: 048
     Dates: start: 20190618
  3. VITAMIN D3 [Concomitant]
     Active Substance: CHOLECALCIFEROL
     Indication: Myasthenia gravis
     Dosage: 1 DF (5000 UT), QD
     Route: 048
  4. VITAMIN D3 [Concomitant]
     Active Substance: CHOLECALCIFEROL
     Indication: Vitamin D deficiency
  5. VITAMIN D3 [Concomitant]
     Active Substance: CHOLECALCIFEROL
     Indication: Myasthenia gravis
     Dosage: 1 DF (2000 UT), QD
     Route: 048
     Dates: start: 20210521, end: 20220517
  6. VITAMIN D3 [Concomitant]
     Active Substance: CHOLECALCIFEROL
     Indication: Vitamin D deficiency
  7. DELTASONE                          /00044701/ [Concomitant]
     Indication: Myasthenia gravis
     Dosage: 3 DF (10 MG), QD
     Route: 048
  8. DELTASONE                          /00044701/ [Concomitant]
     Dosage: 15 MG, QD
     Route: 048
  9. DELTASONE                          /00044701/ [Concomitant]
     Dosage: 2 DF (10 MG), EVERY MORNING
     Route: 048
     Dates: start: 20210521, end: 20211019
  10. PRILOSEC [Concomitant]
     Active Substance: OMEPRAZOLE MAGNESIUM
     Indication: Gastrooesophageal reflux disease
     Dosage: 1 DF, QD
     Route: 048
  11. FLOVENT HFA [Concomitant]
     Active Substance: FLUTICASONE PROPIONATE
     Indication: Product used for unknown indication
     Dosage: 110MCG/ACT (2 PUFFS), BID
     Route: 055
  12. ALBUTEROL [Concomitant]
     Active Substance: ALBUTEROL
     Indication: Asthma
     Dosage: 108MCG/ACT (4 PUFFS), Q4H (AS NEEDED)
     Route: 055
  13. MESTINON [Concomitant]
     Active Substance: PYRIDOSTIGMINE BROMIDE
     Indication: Product used for unknown indication
     Dosage: 180 MG (2TAB QD IN MORNING AND 1TAB QHS)
     Route: 048
  14. SOLU-CORTEF [Concomitant]
     Active Substance: HYDROCORTISONE SODIUM SUCCINATE
     Indication: Stress
     Dosage: 2 ML, PRN
     Route: 030
  15. RITUXIMAB [Concomitant]
     Active Substance: RITUXIMAB
     Indication: Myasthenia gravis
     Dosage: 1000 MG, UNK
     Route: 065
     Dates: start: 20180728
  16. RITUXIMAB [Concomitant]
     Active Substance: RITUXIMAB
     Dosage: 1000 MG, UNK
     Route: 065
     Dates: start: 20180811
  17. RITUXIMAB [Concomitant]
     Active Substance: RITUXIMAB
     Dosage: 1000 MG, UNK
     Route: 065
     Dates: start: 20190208
  18. RITUXIMAB [Concomitant]
     Active Substance: RITUXIMAB
     Dosage: 1000 MG, UNK
     Route: 065
     Dates: start: 20190726
  19. RITUXIMAB [Concomitant]
     Active Substance: RITUXIMAB
     Dosage: 1000 MG, UNK
     Route: 065
     Dates: start: 20200127
  20. RITUXIMAB [Concomitant]
     Active Substance: RITUXIMAB
     Dosage: 1000 MG, UNK
     Route: 065
     Dates: start: 20200727
  21. RITUXIMAB [Concomitant]
     Active Substance: RITUXIMAB
     Dosage: 1000 MG, UNK
     Route: 065
     Dates: start: 20210122

REACTIONS (3)
  - Erythema [Unknown]
  - Hypoaesthesia [Unknown]
  - Abdominal discomfort [Unknown]
